FAERS Safety Report 8567628-9 (Version None)
Quarter: 2012Q3

REPORT INFORMATION
  Report Type: 
  Country: None (occurrence: None)
  Receive Date: 20120803
  Receipt Date: 20120724
  Transmission Date: 20120928
  Serious: Yes (Other)
  Sender: FDA-Public Use
  Company Number: US-ROCHE-1062662

PATIENT
  Sex: Female

DRUGS (3)
  1. ACCUTANE [Suspect]
     Indication: ACNE CYSTIC
     Route: 048
     Dates: start: 19980430, end: 19980915
  2. ACCUTANE [Suspect]
     Route: 048
     Dates: start: 20000914, end: 20010127
  3. TRETINOIN [Concomitant]

REACTIONS (9)
  - LIP DRY [None]
  - JOINT STIFFNESS [None]
  - DEPRESSION [None]
  - HAEMORRHOIDS [None]
  - COLITIS ULCERATIVE [None]
  - IMPAIRED GASTRIC EMPTYING [None]
  - GASTRITIS [None]
  - HIATUS HERNIA [None]
  - OESOPHAGITIS [None]
